FAERS Safety Report 8431214-1 (Version None)
Quarter: 2012Q2

REPORT INFORMATION
  Report Type: 
  Country: None (occurrence: None)
  Receive Date: 20120612
  Receipt Date: 20120605
  Transmission Date: 20120825
  Serious: Yes (Hospitalization)
  Sender: FDA-Public Use
  Company Number: JP-B.I. PHARMACEUTICALS,INC./RIDGEFIELD-2012-BP-03078NB

PATIENT
  Sex: Female

DRUGS (3)
  1. PRADAXA [Suspect]
     Route: 048
     Dates: start: 20120120
  2. PRADAXA [Suspect]
     Dosage: 150 MG
     Route: 048
     Dates: start: 20120113, end: 20120116
  3. PRADAXA [Suspect]
     Indication: ATRIAL FIBRILLATION
     Route: 048
     Dates: start: 20110815

REACTIONS (2)
  - COLONIC POLYP [None]
  - MELAENA [None]
